FAERS Safety Report 10050277 (Version 2)
Quarter: 2014Q2

REPORT INFORMATION
  Report Type: Report from Study
  Country: ES (occurrence: ES)
  Receive Date: 20140401
  Receipt Date: 20140421
  Transmission Date: 20141212
  Serious: Yes (Other)
  Sender: FDA-Public Use
  Company Number: ES-ROCHE-1366524

PATIENT
  Age: 35 Year
  Sex: Female
  Weight: 102 kg

DRUGS (10)
  1. VEMURAFENIB [Suspect]
     Indication: METASTATIC MALIGNANT MELANOMA
     Route: 048
     Dates: start: 20140109, end: 20140304
  2. LORAZEPAM [Concomitant]
     Indication: DEPRESSION
     Route: 048
     Dates: start: 2011
  3. ARIPIPRAZOL [Concomitant]
     Indication: DEPRESSION
     Route: 048
     Dates: start: 2011
  4. FLUOXETINE [Concomitant]
     Indication: DEPRESSION
     Route: 048
     Dates: start: 2011
  5. OMEPRAZOL [Concomitant]
     Indication: PROPHYLAXIS
     Route: 048
  6. TRAZODONA CLORHIDRATO [Concomitant]
     Indication: DEPRESSION
     Route: 048
     Dates: start: 2011
  7. LORMETAZEPAM [Concomitant]
     Indication: INSOMNIA
     Route: 048
     Dates: start: 20140219
  8. IBUPROFEN [Concomitant]
     Indication: PAIN
     Route: 048
     Dates: start: 2011
  9. LOPERAMIDE [Concomitant]
     Indication: DIARRHOEA
     Route: 048
     Dates: start: 20140123
  10. COBIMETINIB [Suspect]
     Indication: METASTATIC MALIGNANT MELANOMA
     Dosage: MOST RECENT DOSE PRIOR TO THE EVENT: 26/FEB/2014
     Route: 048
     Dates: start: 20140109

REACTIONS (1)
  - Interstitial lung disease [Recovered/Resolved]
